FAERS Safety Report 9878759 (Version 1)
Quarter: 2014Q1

REPORT INFORMATION
  Report Type: Spontaneous
  Country: US (occurrence: US)
  Receive Date: 20140206
  Receipt Date: 20140206
  Transmission Date: 20141002
  Serious: Yes (Hospitalization)
  Sender: FDA-Public Use
  Company Number: US-GLAXOSMITHKLINE-A1058683A

PATIENT
  Age: 54 Year
  Sex: Male

DRUGS (6)
  1. ARIXTRA [Suspect]
     Indication: PULMONARY THROMBOSIS
     Dosage: 7.5MG PER DAY
     Route: 058
     Dates: start: 20131224, end: 20140114
  2. CHEMOTHERAPY [Suspect]
     Indication: NEOPLASM MALIGNANT
     Route: 065
  3. DILAUDID [Concomitant]
  4. MORPHINE [Concomitant]
  5. COLACE [Concomitant]
  6. DULCOLAX [Concomitant]

REACTIONS (10)
  - Transient ischaemic attack [Recovering/Resolving]
  - Pericardial effusion [Recovering/Resolving]
  - Pericardial drainage [Recovering/Resolving]
  - Thrombosis [Recovering/Resolving]
  - Constipation [Recovering/Resolving]
  - Vomiting [Recovering/Resolving]
  - Decreased appetite [Recovering/Resolving]
  - Gastric disorder [Recovering/Resolving]
  - Diagnostic procedure [Recovering/Resolving]
  - Computerised tomogram abnormal [Recovering/Resolving]
